FAERS Safety Report 7660076-5 (Version None)
Quarter: 2011Q3

REPORT INFORMATION
  Report Type: 
  Country: None (occurrence: None)
  Receive Date: 20110805
  Receipt Date: 20110722
  Transmission Date: 20111222
  Serious: Yes (Other)
  Sender: FDA-Public Use
  Company Number: PHHY2011FR67574

PATIENT

DRUGS (2)
  1. METHYLPHENIDATE [Suspect]
     Dosage: 10 MG, PER DAY
  2. MODAFINIL [Suspect]
     Dosage: 100 MG, PER DAY

REACTIONS (4)
  - ABNORMAL BEHAVIOUR [None]
  - TIC [None]
  - AGGRESSION [None]
  - IRRITABILITY [None]
